FAERS Safety Report 6681090-2 (Version None)
Quarter: 2010Q2

REPORT INFORMATION
  Report Type: 
  Country: None (occurrence: None)
  Receive Date: 20100414
  Receipt Date: 20100402
  Transmission Date: 20101027
  Serious: Yes (Hospitalization)
  Sender: FDA-Public Use
  Company Number: JP-ROCHE-683500

PATIENT
  Sex: Male
  Weight: 70 kg

DRUGS (15)
  1. TOCILIZUMAB [Suspect]
     Indication: RHEUMATOID ARTHRITIS
     Route: 041
     Dates: start: 20090101, end: 20091005
  2. TOCILIZUMAB [Suspect]
     Route: 041
     Dates: start: 20090618, end: 20090618
  3. TOCILIZUMAB [Suspect]
     Route: 041
     Dates: start: 20090716, end: 20090716
  4. TOCILIZUMAB [Suspect]
     Route: 041
     Dates: start: 20090806, end: 20090806
  5. TOCILIZUMAB [Suspect]
     Route: 041
     Dates: start: 20090903, end: 20090903
  6. TOCILIZUMAB [Suspect]
     Route: 041
     Dates: start: 20091005, end: 20091005
  7. PREDNISOLONE [Concomitant]
     Route: 048
  8. AZULFIDINE [Concomitant]
     Dosage: FOMR: ENTERIC COATING DRUG
     Route: 048
  9. PROTECADIN [Concomitant]
     Route: 048
  10. PROMAC [Concomitant]
     Route: 048
  11. ALENDRONATE SODIUM [Concomitant]
     Dosage: FORM: PERORAL AGENT
     Route: 048
  12. ONEALFA [Concomitant]
     Dosage: FORM: PERORAL AGENT
     Route: 048
  13. SOLETON [Concomitant]
     Route: 048
  14. ISCOTIN [Concomitant]
     Dosage: FORM: PERORAL AGENT
     Route: 048
  15. PYDOXAL [Concomitant]
     Route: 048

REACTIONS (3)
  - ALANINE AMINOTRANSFERASE INCREASED [None]
  - ASPARTATE AMINOTRANSFERASE INCREASED [None]
  - INTERSTITIAL LUNG DISEASE [None]
